FAERS Safety Report 13044300 (Version 1)
Quarter: 2016Q4

REPORT INFORMATION
  Report Type: Spontaneous
  Country: US (occurrence: US)
  Receive Date: 20161220
  Receipt Date: 20161220
  Transmission Date: 20170207
  Serious: No
  Sender: FDA-Public Use
  Company Number: US-ACTAVIS-2016-06207

PATIENT
  Age: 60 Year
  Sex: Male

DRUGS (1)
  1. HYDROCORTISONE (AMALLC) [Suspect]
     Active Substance: HYDROCORTISONE
     Indication: ARTHROPOD BITE
     Dosage: SEVERAL TIMES A DAY
     Route: 065
     Dates: start: 201602

REACTIONS (2)
  - Libido decreased [Not Recovered/Not Resolved]
  - Sexual dysfunction [Not Recovered/Not Resolved]
